FAERS Safety Report 8120934-4 (Version None)
Quarter: 2012Q1

REPORT INFORMATION
  Report Type: 
  Country: None (occurrence: None)
  Receive Date: 20120203
  Receipt Date: 20120125
  Transmission Date: 20120608
  Serious: Yes (Hospitalization, Other)
  Sender: FDA-Public Use
  Company Number: CA-1190138

PATIENT
  Age: 83 Year
  Sex: Female

DRUGS (1)
  1. FLUORESCITE [Suspect]
     Indication: ANGIOGRAM RETINA
     Dosage: (INTRAVENOUS BOLUS)
     Route: 040
     Dates: start: 20120123, end: 20120123

REACTIONS (5)
  - BLOOD PRESSURE DECREASED [None]
  - SYNCOPE [None]
  - PULMONARY OEDEMA [None]
  - BURNING SENSATION [None]
  - NAUSEA [None]
